FAERS Safety Report 10548061 (Version 1)
Quarter: 2014Q4

REPORT INFORMATION
  Report Type: Spontaneous
  Country: US (occurrence: None)
  Receive Date: 20141027
  Receipt Date: 20141027
  Transmission Date: 20150529
  Serious: Yes (Other)
  Sender: FDA-Public Use
  Company Number: None

PATIENT
  Age: 75 Year
  Sex: Female
  Weight: 98.43 kg

DRUGS (1)
  1. PROPOFOL. [Suspect]
     Active Substance: PROPOFOL
     Indication: COLONOSCOPY
     Dosage: ONCE
     Dates: start: 20141024

REACTIONS (8)
  - Dizziness [None]
  - Myalgia [None]
  - Procedural vomiting [None]
  - Hypokinesia [None]
  - Muscular weakness [None]
  - Musculoskeletal stiffness [None]
  - Tremor [None]
  - Muscle spasms [None]

NARRATIVE: CASE EVENT DATE: 20141024
